FAERS Safety Report 7388353-6 (Version None)
Quarter: 2011Q2

REPORT INFORMATION
  Report Type: 
  Country: None (occurrence: None)
  Receive Date: 20110401
  Receipt Date: 20110318
  Transmission Date: 20111010
  Serious: Yes (Other)
  Sender: FDA-Public Use
  Company Number: PHFR2011GB01896

PATIENT
  Sex: Female

DRUGS (1)
  1. CLOZARIL [Suspect]
     Indication: SCHIZOPHRENIA
     Dosage: UNK MG, UNK
     Route: 048
     Dates: start: 20110221

REACTIONS (5)
  - URINARY TRACT INFECTION [None]
  - MALAISE [None]
  - PYREXIA [None]
  - ATRIAL FIBRILLATION [None]
  - CONFUSIONAL STATE [None]
